FAERS Safety Report 20761476 (Version 1)
Quarter: 2022Q2

REPORT INFORMATION
  Report Type: Spontaneous
  Country: CN (occurrence: CN)
  Receive Date: 20220428
  Receipt Date: 20220428
  Transmission Date: 20220720
  Serious: Yes (Hospitalization, Other)
  Sender: FDA-Public Use
  Company Number: CH-ALVOGEN-2022-ALVOGEN-119692

PATIENT
  Age: 50 Year
  Sex: Male

DRUGS (2)
  1. LIDOCAINE [Suspect]
     Active Substance: LIDOCAINE
     Indication: Tooth restoration
     Dosage: 2%
  2. EPINEPHRINE [Suspect]
     Active Substance: EPINEPHRINE
     Indication: Tooth restoration

REACTIONS (1)
  - Acute myocardial infarction [Recovering/Resolving]
